FAERS Safety Report 5764916-6 (Version None)
Quarter: 2008Q2

REPORT INFORMATION
  Report Type: 
  Country: None (occurrence: None)
  Receive Date: 20080611
  Receipt Date: 20080603
  Transmission Date: 20081010
  Serious: Yes (Hospitalization, Congenital Anomaly)
  Sender: FDA-Public Use
  Company Number: A0689068A

PATIENT
  Sex: Male
  Weight: 4.2 kg

DRUGS (3)
  1. PAXIL [Suspect]
     Indication: DEPRESSION
     Dosage: 20MG PER DAY
     Dates: start: 20040101, end: 20050101
  2. TYLENOL [Concomitant]
     Indication: HEADACHE
     Dosage: 2TAB WEEKLY
     Dates: end: 20050201
  3. VITAMIN TAB [Concomitant]
     Indication: PREGNANCY
     Dates: start: 20010401, end: 20050401

REACTIONS (6)
  - ATRIAL SEPTAL DEFECT [None]
  - CARDIAC MURMUR [None]
  - DRUG EXPOSURE DURING PREGNANCY [None]
  - EMOTIONAL DISTRESS [None]
  - PAIN [None]
  - PULMONARY VALVE STENOSIS [None]
